FAERS Safety Report 4690637-7 (Version None)
Quarter: 2005Q2

REPORT INFORMATION
  Report Type: 
  Country: None (occurrence: None)
  Receive Date: 20050615
  Receipt Date: 20050610
  Transmission Date: 20051028
  Serious: Yes (Hospitalization)
  Sender: FDA-Public Use
  Company Number: US-GLAXOSMITHKLINE-A0562102A

PATIENT
  Age: 75 Year
  Sex: Female

DRUGS (2)
  1. COREG [Suspect]
     Route: 048
     Dates: end: 20050610
  2. NO CONCURRENT MEDICATION [Concomitant]

REACTIONS (3)
  - DIVERTICULITIS [None]
  - GRANULOCYTOPENIA [None]
  - INTESTINAL PERFORATION [None]
